FAERS Safety Report 6153829-6 (Version None)
Quarter: 2009Q2

REPORT INFORMATION
  Report Type: 
  Country: None (occurrence: None)
  Receive Date: 20090414
  Receipt Date: 20090402
  Transmission Date: 20091009
  Serious: Yes (Other)
  Sender: FDA-Public Use
  Company Number: GB-RANBAXY-2009RR-23248

PATIENT
  Age: 32 Year
  Sex: Female
  Weight: 57 kg

DRUGS (3)
  1. CLARITHROMYCIN [Suspect]
     Indication: TONSILLITIS
     Dosage: 500 MG, UNK
     Route: 048
     Dates: start: 20090212
  2. ACETAMINOPHEN W/ CODEINE [Concomitant]
     Indication: TONSILLITIS
     Dosage: UNK
     Route: 048
     Dates: start: 20090212, end: 20090216
  3. DICLOFENAC [Concomitant]
     Indication: DYSMENORRHOEA
     Dosage: 150 MG, UNK
     Route: 048
     Dates: start: 20081229, end: 20090102

REACTIONS (3)
  - CHROMATURIA [None]
  - LIVER FUNCTION TEST ABNORMAL [None]
  - OEDEMA PERIPHERAL [None]
